FAERS Safety Report 7571756-4 (Version None)
Quarter: 2011Q2

REPORT INFORMATION
  Report Type: 
  Country: None (occurrence: None)
  Receive Date: 20110624
  Receipt Date: 20110616
  Transmission Date: 20111010
  Serious: Yes (Hospitalization)
  Sender: FDA-Public Use
  Company Number: US-ASTRAZENECA-2011SE37004

PATIENT
  Sex: Female

DRUGS (5)
  1. NORVASC [Concomitant]
  2. NEXIUM [Suspect]
     Route: 048
  3. TOPROL-XL [Suspect]
     Route: 048
  4. 3 BLOOD PRESSURE PILLS [Concomitant]
  5. BENAZEPRIL HCTZ [Concomitant]

REACTIONS (8)
  - CATARACT OPERATION [None]
  - GASTROOESOPHAGEAL REFLUX DISEASE [None]
  - HYSTERECTOMY [None]
  - HOSPITALISATION [None]
  - HIATUS HERNIA [None]
  - DYSPHAGIA [None]
  - CATARACT [None]
  - DIARRHOEA [None]
